FAERS Safety Report 10648260 (Version 1)
Quarter: 2014Q4

REPORT INFORMATION
  Report Type: Report from Study
  Country: BR (occurrence: BR)
  Receive Date: 20141212
  Receipt Date: 20141212
  Transmission Date: 20150529
  Serious: Yes (Other)
  Sender: FDA-Public Use
  Company Number: BR-SA-2014SA168216

PATIENT
  Sex: Male
  Weight: 57 kg

DRUGS (3)
  1. LANTUS SOLOSTAR [Suspect]
     Active Substance: INSULIN GLARGINE
     Indication: TYPE 1 DIABETES MELLITUS
     Dosage: FOREQUENCY: DAILY IN THE MORNING
     Route: 058
     Dates: start: 201407
  2. ALL OTHER THERAPEUTIC PRODUCTS [Concomitant]
     Active Substance: UNSPECIFIED INGREDIENT
     Indication: HYPERSENSITIVITY
  3. SOLOSTAR [Concomitant]
     Active Substance: DEVICE
     Indication: TYPE 1 DIABETES MELLITUS
     Dates: start: 201407

REACTIONS (8)
  - Blood pressure decreased [Not Recovered/Not Resolved]
  - Sensory loss [Not Recovered/Not Resolved]
  - Neoplasm [Not Recovered/Not Resolved]
  - Somnolence [Not Recovered/Not Resolved]
  - Arthralgia [Not Recovered/Not Resolved]
  - Syncope [Not Recovered/Not Resolved]
  - Injection site mass [Not Recovered/Not Resolved]
  - Retching [Recovering/Resolving]

NARRATIVE: CASE EVENT DATE: 201411
